FAERS Safety Report 5343404-5 (Version None)
Quarter: 2007Q2

REPORT INFORMATION
  Report Type: 
  Country: None (occurrence: None)
  Receive Date: 20070531
  Receipt Date: 20070515
  Transmission Date: 20071010
  Serious: Yes (Death, Hospitalization)
  Sender: FDA-Public Use
  Company Number: GXKR2007GB04346

PATIENT
  Age: 55 Year
  Sex: Male

DRUGS (3)
  1. PARACETAMOL (NGX) (PARACETAMOL) UNKNOWN [Suspect]
     Indication: INTENTIONAL OVERDOSE
     Dosage: 50 G, ONCE/SINGLE, ORAL
     Route: 048
  2. CINNARIZINE (NGX) (CINNARIZINE) [Suspect]
     Indication: INTENTIONAL OVERDOSE
     Dosage: 1.125 G, ONCE/SINGLE, ORAL
     Route: 048
  3. ACETYLSALICYLIC ACID SRT [Concomitant]

REACTIONS (18)
  - ACUTE RESPIRATORY DISTRESS SYNDROME [None]
  - AGITATION [None]
  - ALANINE AMINOTRANSFERASE INCREASED [None]
  - BASE EXCESS INCREASED [None]
  - BLOOD BICARBONATE DECREASED [None]
  - BLOOD BILIRUBIN INCREASED [None]
  - BLOOD CREATININE INCREASED [None]
  - BLOOD GLUCOSE FLUCTUATION [None]
  - BLOOD GLUCOSE INCREASED [None]
  - CARDIOGENIC SHOCK [None]
  - DEPRESSED LEVEL OF CONSCIOUSNESS [None]
  - DRUG TOXICITY [None]
  - INTERNATIONAL NORMALISED RATIO INCREASED [None]
  - LACTIC ACIDOSIS [None]
  - MULTI-ORGAN FAILURE [None]
  - MULTIPLE DRUG OVERDOSE INTENTIONAL [None]
  - PROTHROMBIN TIME ABNORMAL [None]
  - RENAL FAILURE ACUTE [None]
